FAERS Safety Report 16465875 (Version 1)
Quarter: 2019Q2

REPORT INFORMATION
  Report Type: Spontaneous
  Country: US (occurrence: US)
  Receive Date: 20190621
  Receipt Date: 20190621
  Transmission Date: 20190711
  Serious: No
  Sender: FDA-Public Use
  Company Number: US-ACTELION-A-NJ2019-192113

PATIENT
  Sex: Female
  Weight: 72.56 kg

DRUGS (1)
  1. UPTRAVI [Suspect]
     Active Substance: SELEXIPAG
     Indication: PULMONARY ARTERIAL HYPERTENSION
     Dosage: 600 MCG, BID
     Route: 048
     Dates: start: 20190614

REACTIONS (4)
  - Headache [Unknown]
  - Jaw disorder [Unknown]
  - Hyperhidrosis [Unknown]
  - Nausea [Unknown]
